FAERS Safety Report 18762167 (Version 1)
Quarter: 2021Q1

REPORT INFORMATION
  Report Type: Spontaneous
  Country: FR (occurrence: FR)
  Receive Date: 20210120
  Receipt Date: 20210120
  Transmission Date: 20210419
  Serious: Yes (Other)
  Sender: FDA-Public Use
  Company Number: FR-VELOXIS PHARMACEUTICALS-2020VELFR-001065

PATIENT
  Age: 58 Year
  Sex: Female
  Weight: 116.5 kg

DRUGS (7)
  1. KETAMINE RENAUDIN [Suspect]
     Active Substance: KETAMINE
     Indication: ANALGESIC INTERVENTION SUPPORTIVE THERAPY
     Dosage: 50 MILLIGRAM, QD
     Route: 041
     Dates: start: 20201105, end: 20201109
  2. VALGANCICLOVIR ARROW [Interacting]
     Active Substance: VALGANCICLOVIR HYDROCHLORIDE
     Indication: ANTIVIRAL PROPHYLAXIS
     Dosage: 900 MILLIGRAM, QD
     Route: 048
     Dates: start: 20201106
  3. ENVARSUS XR [Suspect]
     Active Substance: TACROLIMUS
     Indication: PROPHYLAXIS AGAINST TRANSPLANT REJECTION
     Dosage: 2 MILLIGRAM, QD
     Route: 048
     Dates: start: 20201106
  4. ALPRAZOLAM. [Interacting]
     Active Substance: ALPRAZOLAM
     Indication: ANXIETY
     Dosage: 1.5 MILLIGRAM, QD
     Route: 048
     Dates: start: 20201104
  5. TOPALGIC LP [Interacting]
     Active Substance: TRAMADOL HYDROCHLORIDE
     Indication: ANALGESIC INTERVENTION SUPPORTIVE THERAPY
     Dosage: UNK
     Route: 041
     Dates: start: 20201105, end: 20201108
  6. NEFOPAM MEDISOL [Interacting]
     Active Substance: NEFOPAM HYDROCHLORIDE
     Indication: ANALGESIC INTERVENTION SUPPORTIVE THERAPY
     Dosage: 80 MILLIGRAM, QD
     Route: 041
     Dates: start: 20201105, end: 20201108
  7. PIPERACILLINE PANPHARMA [Interacting]
     Active Substance: PIPERACILLIN SODIUM
     Indication: ANTIBIOTIC PROPHYLAXIS
     Dosage: 16 MILLIGRAM, QD
     Route: 041
     Dates: start: 20201105, end: 20201108

REACTIONS (2)
  - Drug interaction [Unknown]
  - Tonic clonic movements [Recovered/Resolved]

NARRATIVE: CASE EVENT DATE: 20201108
